FAERS Safety Report 25079467 (Version 2)
Quarter: 2025Q1

REPORT INFORMATION
  Report Type: Spontaneous
  Country: FR (occurrence: FR)
  Receive Date: 20250314
  Receipt Date: 20250319
  Transmission Date: 20250409
  Serious: Yes (Other)
  Sender: PFIZER
  Company Number: FR-PFIZER INC-202500055379

PATIENT

DRUGS (2)
  1. LORLATINIB [Suspect]
     Active Substance: LORLATINIB
     Indication: Non-small cell lung cancer
     Dates: start: 2023
  2. LORLATINIB [Suspect]
     Active Substance: LORLATINIB

REACTIONS (7)
  - Interstitial lung disease [Unknown]
  - Non-small cell lung cancer recurrent [Unknown]
  - Lymphangitis [Unknown]
  - Pulmonary toxicity [Unknown]
  - Sarcoidosis [Unknown]
  - Granuloma [Unknown]
  - Sarcoid-like reaction [Unknown]

NARRATIVE: CASE EVENT DATE: 20230101
